FAERS Safety Report 4616571-6 (Version None)
Quarter: 2005Q1

REPORT INFORMATION
  Report Type: 
  Country: None (occurrence: None)
  Receive Date: 20050318
  Receipt Date: 20050302
  Transmission Date: 20050727
  Serious: Yes (Death, Hospitalization)
  Sender: FDA-Public Use
  Company Number: L04-USA-07403-44

PATIENT
  Age: 56 Year
  Sex: Female

DRUGS (3)
  1. ISOSORBIDE DINITRATE [Suspect]
     Dosage: UNK
     Route: 065
  2. LISINOPRIL [Suspect]
     Dosage: UNK
     Route: 065
  3. ATENOLOL [Suspect]
     Dosage: UNK

REACTIONS (7)
  - BRAIN HERNIATION [None]
  - CEREBRAL HAEMORRHAGE [None]
  - CEREBROVASCULAR ACCIDENT [None]
  - COMA [None]
  - COMPLETED SUICIDE [None]
  - INTENTIONAL MISUSE [None]
  - ISCHAEMIC CEREBRAL INFARCTION [None]
